FAERS Safety Report 10071554 (Version 2)
Quarter: 2014Q2

REPORT INFORMATION
  Report Type: Other
  Country: FR (occurrence: FR)
  Receive Date: 20140410
  Receipt Date: 20140410
  Transmission Date: 20141212
  Serious: Yes (Death, Hospitalization, Congenital Anomaly, Other)
  Sender: FDA-Public Use
  Company Number: FR-ABBVIE-99P-056-0062930-00

PATIENT
  Age: 1 Day
  Sex: Male
  Weight: 3 kg

DRUGS (1)
  1. DEPAKENE [Suspect]
     Indication: MATERNAL EXPOSURE TIMING UNSPECIFIED

REACTIONS (15)
  - Cardiac failure congestive [Fatal]
  - Electrocardiogram abnormal [Unknown]
  - Congenital arterial malformation [Recovered/Resolved]
  - Patent ductus arteriosus [Recovered/Resolved]
  - Delayed fontanelle closure [Unknown]
  - Feeding disorder neonatal [Unknown]
  - Pulmonary valve stenosis [Fatal]
  - Talipes [Unknown]
  - Microcephaly [Unknown]
  - Phalangeal hypoplasia [Unknown]
  - Congenital iris anomaly [Unknown]
  - Congenital nose malformation [Unknown]
  - Dysmorphism [Unknown]
  - Congenital eyelid malformation [Unknown]
  - Congenital oral malformation [Unknown]
